FAERS Safety Report 25152314 (Version 1)
Quarter: 2025Q2

REPORT INFORMATION
  Report Type: Spontaneous
  Country: US (occurrence: US)
  Receive Date: 20250402
  Receipt Date: 20250402
  Transmission Date: 20250716
  Serious: No
  Sender: ADMA BIOLOGICS
  Company Number: US-ADMA BIOLOGICS INC.-US-2025ADM000141

PATIENT
  Age: 74 Year
  Sex: Male

DRUGS (1)
  1. BIVIGAM [Suspect]
     Active Substance: HUMAN IMMUNOGLOBULIN G
     Indication: Immunodeficiency
     Route: 042

REACTIONS (2)
  - Rash [Recovered/Resolved]
  - Pruritus [Recovered/Resolved]

NARRATIVE: CASE EVENT DATE: 20250318
